FAERS Safety Report 4846312-9 (Version None)
Quarter: 2005Q4

REPORT INFORMATION
  Report Type: 
  Country: None (occurrence: None)
  Receive Date: 20051206
  Receipt Date: 20051125
  Transmission Date: 20060501
  Serious: Yes (Hospitalization)
  Sender: FDA-Public Use
  Company Number: JP-ROCHE-426100

PATIENT
  Age: 91 Year
  Sex: Male

DRUGS (9)
  1. NICARDIPINE HCL [Suspect]
     Indication: DRUG USE FOR UNKNOWN INDICATION
     Route: 041
     Dates: start: 20051031
  2. DILTIAZEM HYDROCHLORIDE [Concomitant]
     Route: 041
     Dates: start: 20051029, end: 20051031
  3. TRANEXAMIC ACID [Concomitant]
     Route: 041
     Dates: start: 20051030
  4. CARBAZOCHROME SODIUM SULFONATE [Concomitant]
     Route: 041
     Dates: start: 20051030
  5. VITAMEDIN [Concomitant]
     Route: 041
     Dates: start: 20051030
  6. CEFTRIAXONE SODIUM [Concomitant]
     Route: 041
     Dates: start: 20051030
  7. GABEXATE MESILATE [Concomitant]
     Route: 041
     Dates: start: 20051030, end: 20051031
  8. OMEPRAZOLE [Concomitant]
     Route: 041
     Dates: start: 20051030
  9. HALOPERIDOL [Concomitant]
     Route: 041
     Dates: start: 20051030

REACTIONS (4)
  - CEREBRAL INFARCTION [None]
  - DEPRESSED LEVEL OF CONSCIOUSNESS [None]
  - HYPERTENSIVE ENCEPHALOPATHY [None]
  - MUSCLE SPASMS [None]
